FAERS Safety Report 15276145 (Version 1)
Quarter: 2018Q3

REPORT INFORMATION
  Report Type: Spontaneous
  Country: US (occurrence: US)
  Receive Date: 20180727
  Receipt Date: 20180727
  Transmission Date: 20181010
  Serious: Yes (Death)
  Sender: FDA-Public Use
  Company Number: None

PATIENT
  Age: 71 Year
  Sex: Male

DRUGS (14)
  1. PHENYTOIN. [Suspect]
     Active Substance: PHENYTOIN
     Indication: CONVULSION PROPHYLAXIS
     Route: 048
     Dates: start: 20180606, end: 20180609
  2. QUETIAPINE. [Concomitant]
     Active Substance: QUETIAPINE
  3. FOLIC ACID. [Concomitant]
     Active Substance: FOLIC ACID
  4. MAGNESIUM SULFATE. [Concomitant]
     Active Substance: MAGNESIUM SULFATE
  5. METHYLPHENIDATE. [Concomitant]
     Active Substance: METHYLPHENIDATE
  6. PHENYTOIN. [Concomitant]
     Active Substance: PHENYTOIN
  7. THIAMINE [Concomitant]
     Active Substance: THIAMINE
  8. LACTATED RINGERS SOLUTION [Concomitant]
     Active Substance: CALCIUM CHLORIDE\POTASSIUM CHLORIDE\SODIUM CHLORIDE\SODIUM LACTATE
  9. HEPARIN [Concomitant]
     Active Substance: HEPARIN SODIUM
  10. NICOTINE. [Concomitant]
     Active Substance: NICOTINE
  11. MIRTAZAPINE. [Concomitant]
     Active Substance: MIRTAZAPINE
  12. VITAMIN D [Concomitant]
     Active Substance: CHOLECALCIFEROL
  13. LEVETIRACETAM. [Concomitant]
     Active Substance: LEVETIRACETAM
  14. MULTIVITAMIN [Concomitant]
     Active Substance: VITAMINS

REACTIONS (3)
  - Mental status changes [None]
  - Anticonvulsant drug level above therapeutic [None]
  - Blood alkaline phosphatase increased [None]

NARRATIVE: CASE EVENT DATE: 20180609
